FAERS Safety Report 5974210-6 (Version None)
Quarter: 2008Q4

REPORT INFORMATION
  Report Type: 
  Country: None (occurrence: None)
  Receive Date: 20081201
  Receipt Date: 20081121
  Transmission Date: 20090506
  Serious: Yes (Life-Threatening, Other)
  Sender: FDA-Public Use
  Company Number: JP-PFIZER INC-2008068215

PATIENT
  Sex: Male

DRUGS (17)
  1. CAMPTOSAR [Suspect]
     Indication: RECTAL CANCER
     Dosage: DAILY DOSE:240MG
     Route: 042
     Dates: start: 20080526, end: 20080709
  2. FLUOROURACIL [Suspect]
     Indication: RECTAL CANCER
     Dosage: TEXT:650 MG, 4050 MG
     Route: 042
     Dates: start: 20080526, end: 20080709
  3. AVASTIN [Suspect]
     Indication: RECTAL CANCER
     Dosage: DAILY DOSE:300MG
     Route: 042
     Dates: start: 20080526, end: 20080709
  4. LEUCOVORIN CALCIUM [Suspect]
     Indication: RECTAL CANCER
     Dosage: DAILY DOSE:325MG
     Route: 042
     Dates: start: 20080526, end: 20080709
  5. KYTRIL [Concomitant]
     Indication: PREMEDICATION
     Route: 042
     Dates: start: 20080526, end: 20080709
  6. DEXAMETHASONE [Concomitant]
     Indication: PREMEDICATION
     Route: 048
     Dates: start: 20080526, end: 20080709
  7. OXYCONTIN [Concomitant]
     Route: 048
  8. OXINORM [Concomitant]
     Route: 048
  9. VOLTAREN [Concomitant]
     Route: 048
  10. SELBEX [Concomitant]
     Route: 048
  11. FERROMIA [Concomitant]
     Route: 048
  12. GABAPENTIN [Concomitant]
     Route: 048
  13. DEPAKENE [Concomitant]
     Route: 048
  14. MAGNESIUM OXIDE [Concomitant]
     Route: 048
  15. CEFAZOLIN SODIUM [Concomitant]
     Route: 042
     Dates: start: 20080711
  16. PAZUCROSS [Concomitant]
     Route: 042
     Dates: start: 20080713
  17. MEROPEN [Concomitant]
     Route: 042
     Dates: start: 20080717, end: 20080807

REACTIONS (4)
  - HAEMOGLOBIN DECREASED [None]
  - LEUKOPENIA [None]
  - NECROTISING FASCIITIS [None]
  - SEPSIS [None]
